FAERS Safety Report 8037235-5 (Version None)
Quarter: 2012Q1

REPORT INFORMATION
  Report Type: 
  Country: None (occurrence: None)
  Receive Date: 20120109
  Receipt Date: 20111227
  Transmission Date: 20120608
  Serious: Yes (Other)
  Sender: FDA-Public Use
  Company Number: 1150226

PATIENT
  Age: 57 Year
  Sex: Male

DRUGS (3)
  1. LEUCOVORIN CALCIUM [Concomitant]
  2. OXALIPLATIN [Suspect]
     Indication: COLON CANCER METASTATIC
     Dosage: 85 MG/M^2 BIMONTHLY, INTRAVENOUS
     Route: 042
  3. FLUOROURACIL [Concomitant]

REACTIONS (4)
  - EOSINOPHILIC PNEUMONIA [None]
  - INTERSTITIAL LUNG DISEASE [None]
  - HAEMOGLOBIN DECREASED [None]
  - ORGANISING PNEUMONIA [None]
